FAERS Safety Report 23231662 (Version 1)
Quarter: 2023Q4

REPORT INFORMATION
  Report Type: Spontaneous
  Country: CN (occurrence: CN)
  Receive Date: 20231127
  Receipt Date: 20231127
  Transmission Date: 20240109
  Serious: Yes (Life-Threatening)
  Sender: FDA-Public Use
  Company Number: CN-FreseniusKabi-FK202318980

PATIENT
  Age: 52 Year
  Sex: Female

DRUGS (2)
  1. KABIVEN [Suspect]
     Active Substance: AMINO ACIDS\ANHYDROUS DEXTROSE\CALCIUM CHLORIDE\MAGNESIUM SULFATE HEPTAHYDRATE\POTASSIUM CHLORIDE\SO
     Indication: Upper gastrointestinal haemorrhage
     Dosage: DOSE - 1 BAG?FORM OF ADMINISTRATION - INJECTION?ROA - INTRAVENOUS DRIP (IM)
     Route: 041
     Dates: start: 20231103, end: 20231104
  2. KABIVEN [Suspect]
     Active Substance: AMINO ACIDS\ANHYDROUS DEXTROSE\CALCIUM CHLORIDE\MAGNESIUM SULFATE HEPTAHYDRATE\POTASSIUM CHLORIDE\SO
     Indication: Nutritional supplementation

REACTIONS (2)
  - Myalgia [Recovering/Resolving]
  - Temperature intolerance [Recovering/Resolving]

NARRATIVE: CASE EVENT DATE: 20231103
